FAERS Safety Report 21321991 (Version 3)
Quarter: 2022Q3

REPORT INFORMATION
  Report Type: Report from Study
  Country: US (occurrence: US)
  Receive Date: 20220912
  Receipt Date: 20220922
  Transmission Date: 20221026
  Serious: Yes (Hospitalization)
  Sender: FDA-Public Use
  Company Number: US-JNJFOC-20220915910

PATIENT
  Age: 3 Decade
  Sex: Male
  Weight: 65.830 kg

DRUGS (2)
  1. INFLIXIMAB [Suspect]
     Active Substance: INFLIXIMAB
     Indication: Inflammatory bowel disease
     Route: 041
     Dates: start: 20100209, end: 20100406
  2. HUMIRA [Concomitant]
     Active Substance: ADALIMUMAB
     Dates: start: 20100603, end: 20200511

REACTIONS (4)
  - Appendiceal abscess [Recovered/Resolved with Sequelae]
  - Pelvic abscess [Recovered/Resolved]
  - Epididymitis [Recovered/Resolved]
  - Cellulitis of male external genital organ [Not Recovered/Not Resolved]

NARRATIVE: CASE EVENT DATE: 20220610
